FAERS Safety Report 19935602 (Version 1)
Quarter: 2021Q4

REPORT INFORMATION
  Report Type: Spontaneous
  Country: US (occurrence: US)
  Receive Date: 20211008
  Receipt Date: 20211008
  Transmission Date: 20220304
  Serious: Yes (Life-Threatening, Other)
  Sender: FDA-Public Use
  Company Number: US-SA-2021SA327837

PATIENT
  Age: 71 Year
  Sex: Female

DRUGS (12)
  1. DOCETAXEL [Suspect]
     Active Substance: DOCETAXEL
     Indication: Soft tissue sarcoma
     Dosage: 75 MG/M2 (ON DAY EIGHT OF EVERY 21 DAY CYCLE
     Route: 042
     Dates: start: 20180723, end: 20180904
  2. DOCETAXEL [Suspect]
     Active Substance: DOCETAXEL
     Indication: Pleomorphic malignant fibrous histiocytoma
     Dosage: UNK
     Dates: start: 20180917
  3. GEMCITABINE HYDROCHLORIDE [Suspect]
     Active Substance: GEMCITABINE HYDROCHLORIDE
     Indication: Pleomorphic malignant fibrous histiocytoma
     Dosage: 900 MG/M2 (ON DAYS ONE AND EIGHT OF EVERY 21 DAY
     Route: 042
     Dates: start: 20180716, end: 20180904
  4. GEMCITABINE HYDROCHLORIDE [Suspect]
     Active Substance: GEMCITABINE HYDROCHLORIDE
     Dosage: UNK
     Dates: start: 20180917
  5. XANAX [Concomitant]
     Active Substance: ALPRAZOLAM
     Indication: Sleep disorder
     Dosage: UNK
     Dates: start: 2013
  6. XANAX [Concomitant]
     Active Substance: ALPRAZOLAM
     Indication: Anxiety
  7. DECADRON [Concomitant]
     Active Substance: DEXAMETHASONE
     Indication: Prophylaxis of nausea and vomiting
     Dosage: UNK
     Dates: start: 20180522
  8. ZOFRAN [Concomitant]
     Active Substance: ONDANSETRON HYDROCHLORIDE
     Indication: Prophylaxis of nausea and vomiting
     Dosage: UNK
     Dates: start: 20180522
  9. OXYCODONE [Concomitant]
     Active Substance: OXYCODONE
     Indication: Pain prophylaxis
     Dosage: UNK
     Dates: start: 2017
  10. PROCHLORPERAZINE EDISYLATE [Concomitant]
     Active Substance: PROCHLORPERAZINE EDISYLATE
     Indication: Prophylaxis of nausea and vomiting
     Dosage: UNK
     Dates: start: 20180522
  11. CRESTOR [Concomitant]
     Active Substance: ROSUVASTATIN CALCIUM
     Indication: Hypercholesterolaemia
     Dosage: UNK
     Dates: start: 2018
  12. CELECOXIB [Concomitant]
     Active Substance: CELECOXIB
     Indication: Depression
     Dosage: UNK
     Dates: start: 2013

REACTIONS (6)
  - Thrombocytopenia [Recovered/Resolved]
  - Taste disorder [Unknown]
  - Fatigue [Unknown]
  - Asthenia [Unknown]
  - Dizziness [Unknown]
  - Nausea [Unknown]

NARRATIVE: CASE EVENT DATE: 20180911
